FAERS Safety Report 8203449-4 (Version None)
Quarter: 2012Q1

REPORT INFORMATION
  Report Type: 
  Country: None (occurrence: None)
  Receive Date: 20120313
  Receipt Date: 20120301
  Transmission Date: 20120608
  Serious: Yes (Hospitalization, Other)
  Sender: FDA-Public Use
  Company Number: AR-AMGEN-ARGSP2012007343

PATIENT
  Age: 82 Year
  Sex: Female
  Weight: 63.991 kg

DRUGS (8)
  1. ALPRAZOLAM [Concomitant]
     Dosage: 1 MG, UNK
  2. VITAMIN D [Concomitant]
  3. ENBREL [Suspect]
     Indication: RHEUMATOID ARTHRITIS
     Dosage: UNK
  4. ENALAPRIL MALEATE [Concomitant]
     Dosage: 10 MG, UNK
  5. CORTICOSTEROIDS [Concomitant]
     Dosage: 8 MG, 1X/DAY
  6. ALPRAZOLAM [Concomitant]
     Dosage: 1 MG, UNK
  7. ENALAPRIL MALEATE [Concomitant]
     Dosage: 10 MG, UNK
  8. OMEPRAZOLE [Concomitant]
     Dosage: 20 MG, UNK

REACTIONS (4)
  - PYREXIA [None]
  - PAIN [None]
  - NODULE [None]
  - INFECTED SKIN ULCER [None]
